FAERS Safety Report 9956282 (Version 1)
Quarter: 2014Q1

REPORT INFORMATION
  Report Type: Report from Study
  Country: US (occurrence: US)
  Receive Date: 20140304
  Receipt Date: 20140304
  Transmission Date: 20141002
  Serious: No
  Sender: FDA-Public Use
  Company Number: US-ABBVIE-13P-163-1085000-00

PATIENT
  Age: 61 Year
  Sex: Female

DRUGS (13)
  1. HUMIRA [Suspect]
     Indication: CROHN^S DISEASE
     Dates: start: 20130411, end: 20130411
  2. HUMIRA [Suspect]
     Dates: start: 20130425, end: 20130425
  3. HUMIRA [Suspect]
  4. PROTONIX [Concomitant]
     Indication: GASTROOESOPHAGEAL REFLUX DISEASE
  5. LEVOTHROID [Concomitant]
     Indication: THYROID DISORDER
  6. LEVOTHROID [Concomitant]
     Indication: THYROID DISORDER
  7. LEXAPRO [Concomitant]
     Indication: DEPRESSION
  8. LEXAPRO [Concomitant]
     Indication: THYROID DISORDER
  9. AZATHIOPRINE [Concomitant]
     Indication: CROHN^S DISEASE
     Dosage: 3 - 9 TABS DAILY
  10. AZATHIOPRINE [Concomitant]
     Indication: THYROID DISORDER
  11. VITAMIN D [Concomitant]
     Indication: PRODUCT USED FOR UNKNOWN INDICATION
  12. MULTIVITAMIN [Concomitant]
     Indication: PRODUCT USED FOR UNKNOWN INDICATION
  13. LIPITOR [Concomitant]
     Indication: BLOOD CHOLESTEROL

REACTIONS (6)
  - Abdominal pain upper [Not Recovered/Not Resolved]
  - Abdominal rigidity [Not Recovered/Not Resolved]
  - Abdominal pain upper [Not Recovered/Not Resolved]
  - Abdominal pain upper [Not Recovered/Not Resolved]
  - Haematochezia [Not Recovered/Not Resolved]
  - Mucous stools [Not Recovered/Not Resolved]
